FAERS Safety Report 5186305-8 (Version None)
Quarter: 2006Q4

REPORT INFORMATION
  Report Type: 
  Country: None (occurrence: None)
  Receive Date: 20061220
  Receipt Date: 20061215
  Transmission Date: 20070319
  Serious: Yes (Other)
  Sender: FDA-Public Use
  Company Number: US-JNJFOC-20060705372

PATIENT
  Sex: Female
  Weight: 65.77 kg

DRUGS (1)
  1. TOPAMAX [Suspect]
     Indication: MIGRAINE
     Dosage: AT NIGHT
     Route: 048

REACTIONS (5)
  - ANHIDROSIS [None]
  - DYSPNOEA [None]
  - HEART RATE IRREGULAR [None]
  - TACHYCARDIA [None]
  - VENTRICULAR EXTRASYSTOLES [None]
